FAERS Safety Report 20360706 (Version 1)
Quarter: 2022Q1

REPORT INFORMATION
  Report Type: Spontaneous
  Country: US (occurrence: US)
  Receive Date: 20220121
  Receipt Date: 20220121
  Transmission Date: 20220423
  Serious: No
  Sender: FDA-Public Use
  Company Number: US-SA-SAC20220118000301

PATIENT
  Age: 46 Year
  Sex: Female

DRUGS (6)
  1. KEVZARA [Suspect]
     Active Substance: SARILUMAB
     Indication: Polyneuropathy
     Dosage: 140 MG, QOW
     Route: 058
     Dates: start: 20220106
  2. KEVZARA [Suspect]
     Active Substance: SARILUMAB
     Indication: Breast cancer female
  3. KEVZARA [Suspect]
     Active Substance: SARILUMAB
     Indication: Rheumatoid arthritis
  4. KEVZARA [Suspect]
     Active Substance: SARILUMAB
     Indication: Oestrogen receptor assay positive
  5. KEVZARA [Suspect]
     Active Substance: SARILUMAB
     Indication: Ataxia
  6. KEVZARA [Suspect]
     Active Substance: SARILUMAB
     Indication: Polyneuropathy idiopathic progressive

REACTIONS (2)
  - Pain [Unknown]
  - Product use in unapproved indication [Unknown]

NARRATIVE: CASE EVENT DATE: 20220106
